FAERS Safety Report 4673907-8 (Version None)
Quarter: 2005Q2

REPORT INFORMATION
  Report Type: 
  Country: None (occurrence: None)
  Receive Date: 20050524
  Receipt Date: 20050509
  Transmission Date: 20051028
  Serious: Yes (Hospitalization)
  Sender: FDA-Public Use
  Company Number: DE_050515887

PATIENT
  Age: 55 Year
  Sex: Female

DRUGS (3)
  1. CYMBALTA [Suspect]
     Indication: DEPRESSION
     Dosage: 90 MG DAY
     Dates: start: 20050301
  2. PANTOPRAZOLE [Concomitant]
  3. TRIMIPRAMINE MALEATE [Concomitant]

REACTIONS (4)
  - DEAFNESS [None]
  - DRUG INTERACTION [None]
  - OTOTOXICITY [None]
  - TINNITUS [None]
